FAERS Safety Report 5601175-9 (Version None)
Quarter: 2008Q1

REPORT INFORMATION
  Report Type: 
  Country: None (occurrence: None)
  Receive Date: 20080124
  Receipt Date: 20080108
  Transmission Date: 20080703
  Serious: Yes (Death)
  Sender: FDA-Public Use
  Company Number: JP-ASTRAZENECA-2007AP08170

PATIENT
  Age: 25594 Day
  Sex: Male

DRUGS (12)
  1. SEROQUEL [Suspect]
     Indication: DELIRIUM
     Route: 048
     Dates: start: 20071127, end: 20071218
  2. TROXIPIDE [Suspect]
     Indication: PROPHYLAXIS AGAINST GASTROINTESTINAL ULCER
     Route: 048
     Dates: start: 20071127, end: 20071218
  3. METLIGINE [Suspect]
     Indication: ORTHOSTATIC HYPOTENSION
     Route: 048
     Dates: start: 20071127, end: 20071218
  4. YOKU-KAN-SAN [Concomitant]
     Indication: DELIRIUM
     Dates: start: 20071127, end: 20071220
  5. BERBERON [Concomitant]
     Indication: CONSTIPATION
     Route: 048
     Dates: start: 20071030, end: 20071220
  6. ADEFURONIC [Concomitant]
     Indication: GASTRIC CANCER
     Dates: start: 20071030, end: 20071220
  7. LOXONIN [Concomitant]
     Indication: GASTRIC CANCER
     Route: 048
     Dates: start: 20071026, end: 20071030
  8. TAKEPRON [Concomitant]
     Indication: PROPHYLAXIS AGAINST GASTROINTESTINAL ULCER
     Route: 048
     Dates: start: 20071030, end: 20071126
  9. RIZE [Concomitant]
     Indication: DELIRIUM
     Route: 048
     Dates: start: 20071101, end: 20071126
  10. RISPERDAL [Concomitant]
     Indication: DELIRIUM
     Route: 048
  11. AMOBAN [Concomitant]
     Indication: INSOMNIA
     Route: 048
     Dates: start: 20071105, end: 20071126
  12. BETAMETHASONE [Concomitant]
     Indication: CACHEXIA
     Route: 048
     Dates: start: 20071112, end: 20071126

REACTIONS (1)
  - HEPATIC FUNCTION ABNORMAL [None]
